FAERS Safety Report 4657635-0 (Version None)
Quarter: 2005Q2

REPORT INFORMATION
  Report Type: 
  Country: None (occurrence: None)
  Receive Date: 20050510
  Receipt Date: 20050503
  Transmission Date: 20051028
  Serious: Yes (Other)
  Sender: FDA-Public Use
  Company Number: US-BRISTOL-MYERS SQUIBB COMPANY-12959243

PATIENT
  Age: 38 Year
  Sex: Male

DRUGS (1)
  1. ERBITUX [Suspect]
     Indication: TONSIL CANCER
     Route: 042

REACTIONS (4)
  - ABDOMINAL PAIN [None]
  - DYSPNOEA [None]
  - FLUSHING [None]
  - MUSCLE SPASMS [None]
